FAERS Safety Report 18968010 (Version 2)
Quarter: 2021Q1

REPORT INFORMATION
  Report Type: Spontaneous
  Country: HR (occurrence: HR)
  Receive Date: 20210304
  Receipt Date: 20210308
  Transmission Date: 20210420
  Serious: Yes (Life-Threatening)
  Sender: FDA-Public Use
  Company Number: HR-SA-2021SA071081

PATIENT
  Age: 46 Year
  Sex: Male
  Weight: 80 kg

DRUGS (1)
  1. LEMTRADA [Suspect]
     Active Substance: ALEMTUZUMAB
     Indication: MULTIPLE SCLEROSIS
     Dosage: 12 MG, QD
     Route: 042
     Dates: start: 20210205, end: 20210205

REACTIONS (6)
  - C-reactive protein increased [Recovering/Resolving]
  - Chills [Recovered/Resolved]
  - Lymphopenia [Recovering/Resolving]
  - Pyrexia [Recovered/Resolved]
  - Procalcitonin increased [Recovering/Resolving]
  - Tremor [Recovered/Resolved]

NARRATIVE: CASE EVENT DATE: 20210206
